FAERS Safety Report 8512734-8 (Version None)
Quarter: 2012Q3

REPORT INFORMATION
  Report Type: 
  Country: None (occurrence: None)
  Receive Date: 20120716
  Receipt Date: 20120709
  Transmission Date: 20120928
  Serious: Yes (Hospitalization)
  Sender: FDA-Public Use
  Company Number: CA-UCBSA-061387

PATIENT
  Sex: Female

DRUGS (5)
  1. DILANTIN [Concomitant]
     Indication: EPILEPSY
     Dosage: DOSE: 100
     Dates: end: 20120101
  2. LAMICTAL [Concomitant]
     Indication: EPILEPSY
     Dosage: DOSE: 200
  3. VIMPAT [Suspect]
     Dosage: DOSE INCREASED
     Route: 048
     Dates: start: 20120101, end: 20120101
  4. VIMPAT [Suspect]
     Indication: EPILEPSY
     Route: 048
     Dates: start: 20120401, end: 20120101
  5. CLONAZAPAN [Concomitant]
     Indication: EPILEPSY

REACTIONS (4)
  - TREMOR [None]
  - BIPOLAR I DISORDER [None]
  - CONVULSION [None]
  - GRAND MAL CONVULSION [None]
